FAERS Safety Report 8847414 (Version 2)
Quarter: 2012Q4

REPORT INFORMATION
  Report Type: 
  Country: US (occurrence: US)
  Receive Date: 20121018
  Receipt Date: 20121108
  Transmission Date: 20130627
  Serious: No
  Sender: FDA-Public Use
  Company Number: US-PFIZER INC-2012259175

PATIENT

DRUGS (1)
  1. CELEBREX [Suspect]
     Dosage: one day (2 doses)

REACTIONS (5)
  - Diarrhoea [Unknown]
  - Dizziness [Unknown]
  - Sedation [Unknown]
  - Headache [Unknown]
  - Visual impairment [Unknown]
